FAERS Safety Report 5869471-8 (Version None)
Quarter: 2008Q3

REPORT INFORMATION
  Report Type: 
  Country: None (occurrence: None)
  Receive Date: 20080828
  Receipt Date: 20080814
  Transmission Date: 20090109
  Serious: Yes (Hospitalization, Other)
  Sender: FDA-Public Use
  Company Number: 2008AL009749

PATIENT
  Sex: Female

DRUGS (3)
  1. CITALOPRAM HYDROBROMIDE TABLETS, 10 MG (PUREPAC) (CITALOPRAM HYDROBROM [Suspect]
     Dosage: 10 MG; QD
  2. DIPYRIDAMOLE [Suspect]
     Dates: start: 20080701
  3. ASPIRIN [Concomitant]

REACTIONS (3)
  - NONSPECIFIC REACTION [None]
  - TRANSIENT ISCHAEMIC ATTACK [None]
  - TREMOR [None]
